FAERS Safety Report 5033615-0 (Version None)
Quarter: 2006Q2

REPORT INFORMATION
  Report Type: 
  Country: None (occurrence: None)
  Receive Date: 20060518
  Receipt Date: 20051109
  Transmission Date: 20061013
  Serious: Yes (Hospitalization, Other)
  Sender: FDA-Public Use
  Company Number: 2005064887

PATIENT
  Age: 37 Year
  Sex: Female

DRUGS (1)
  1. DEPO-PROVERA [Suspect]
     Indication: MENORRHAGIA
     Dosage: SEE IMAGE
     Route: 030
     Dates: start: 20050323, end: 20050323

REACTIONS (2)
  - DYSMENORRHOEA [None]
  - VAGINAL HAEMORRHAGE [None]
